FAERS Safety Report 5266864-7 (Version None)
Quarter: 2007Q1

REPORT INFORMATION
  Report Type: 
  Country: None (occurrence: None)
  Receive Date: 20070316
  Receipt Date: 20070306
  Transmission Date: 20070707
  Serious: Yes (Other)
  Sender: FDA-Public Use
  Company Number: PHBS2007JP03518

PATIENT
  Age: 67 Year
  Sex: Female

DRUGS (5)
  1. PAMIDRONATE DISODIUM [Suspect]
     Indication: MULTIPLE MYELOMA
     Route: 042
     Dates: start: 20020801
  2. MCNU-VMP [Concomitant]
  3. MELPHALAN [Concomitant]
  4. VINCRISTINE + ADRIAMYCIN + DEXAMETHASONE [Concomitant]
  5. THALIDOMIDE [Concomitant]

REACTIONS (3)
  - BONE DISORDER [None]
  - BONE LESION [None]
  - OSTEONECROSIS [None]
